FAERS Safety Report 5968843-0 (Version None)
Quarter: 2008Q4

REPORT INFORMATION
  Report Type: 
  Country: None (occurrence: None)
  Receive Date: 20081126
  Receipt Date: 20081117
  Transmission Date: 20090506
  Serious: Yes (Life-Threatening, Other)
  Sender: FDA-Public Use
  Company Number: NL-WYE-G02584208

PATIENT
  Age: 62 Year
  Sex: Female

DRUGS (8)
  1. EFFEXOR XR [Suspect]
     Indication: DEPRESSION
     Route: 048
     Dates: start: 20060608, end: 20060905
  2. EFFEXOR XR [Suspect]
     Route: 048
     Dates: start: 20060906, end: 20070305
  3. EFFEXOR XR [Suspect]
     Route: 048
     Dates: start: 20070306, end: 20070514
  4. EFFEXOR XR [Suspect]
     Route: 048
     Dates: start: 20070515, end: 20070601
  5. EFFEXOR XR [Suspect]
     Dosage: LOWER DOSE
     Dates: start: 20070601, end: 20080101
  6. EFFEXOR XR [Suspect]
     Dosage: LOWER DOSE
     Dates: start: 20080101, end: 20080501
  7. OMEPRAZOLE [Concomitant]
  8. ALPRAZOLAM [Suspect]
     Dosage: UNK
     Dates: start: 20060601, end: 20080201

REACTIONS (31)
  - ABDOMINAL PAIN UPPER [None]
  - ALOPECIA [None]
  - ANGER [None]
  - ANOREXIA [None]
  - ARTHRALGIA [None]
  - CONDITION AGGRAVATED [None]
  - CONSTIPATION [None]
  - DEPRESSED LEVEL OF CONSCIOUSNESS [None]
  - DEPRESSION [None]
  - DIARRHOEA [None]
  - DIZZINESS [None]
  - DRUG INEFFECTIVE [None]
  - DRUG WITHDRAWAL SYNDROME [None]
  - FATIGUE [None]
  - FEELING COLD [None]
  - FEELING HOT [None]
  - HEADACHE [None]
  - HYPERSOMNIA [None]
  - INSOMNIA [None]
  - NAUSEA [None]
  - NEGATIVE THOUGHTS [None]
  - PALPITATIONS [None]
  - SALIVARY HYPERSECRETION [None]
  - SELF ESTEEM DECREASED [None]
  - SOCIAL PROBLEM [None]
  - SOMNOLENCE [None]
  - SPEECH DISORDER [None]
  - SUICIDAL IDEATION [None]
  - TINNITUS [None]
  - TREMOR [None]
  - WEIGHT DECREASED [None]
